FAERS Safety Report 4994038-3 (Version None)
Quarter: 2006Q2

REPORT INFORMATION
  Report Type: 
  Country: None (occurrence: None)
  Receive Date: 20060505
  Receipt Date: 20060413
  Transmission Date: 20061013
  Serious: Yes (Death)
  Sender: FDA-Public Use
  Company Number: DE-BRISTOL-MYERS SQUIBB COMPANY-13346044

PATIENT
  Age: 47 Year
  Sex: Female
  Weight: 79 kg

DRUGS (5)
  1. ABILIFY [Suspect]
     Indication: SCHIZOAFFECTIVE DISORDER
     Dates: start: 20060316, end: 20060320
  2. SEROQUEL [Suspect]
  3. SOLIAN [Suspect]
     Indication: SCHIZOAFFECTIVE DISORDER
     Dates: start: 20060222
  4. TRILEPTAL [Suspect]
     Indication: SCHIZOAFFECTIVE DISORDER
     Dates: start: 20060112
  5. AKINETON [Suspect]
     Indication: SCHIZOAFFECTIVE DISORDER
     Dates: start: 20060118

REACTIONS (2)
  - COMPLETED SUICIDE [None]
  - SELF INJURIOUS BEHAVIOUR [None]
